FAERS Safety Report 13681896 (Version 1)
Quarter: 2017Q2

REPORT INFORMATION
  Report Type: Spontaneous
  Country: US (occurrence: US)
  Receive Date: 20170622
  Receipt Date: 20170622
  Transmission Date: 20170830
  Serious: No
  Sender: FDA-Public Use
  Company Number: None

PATIENT
  Age: 61 Year
  Sex: Female

DRUGS (1)
  1. FORTEO [Suspect]
     Active Substance: TERIPARATIDE
     Route: 058
     Dates: start: 20170203, end: 20170622

REACTIONS (6)
  - Erythema [None]
  - Purulence [None]
  - Infection [None]
  - Product availability issue [None]
  - Incorrect product storage [None]
  - Acne [None]

NARRATIVE: CASE EVENT DATE: 20170622
